FAERS Safety Report 7717867-1 (Version None)
Quarter: 2011Q3

REPORT INFORMATION
  Report Type: 
  Country: None (occurrence: None)
  Receive Date: 20110817
  Receipt Date: 20101102
  Transmission Date: 20111222
  Serious: Yes (Hospitalization, Other)
  Sender: FDA-Public Use
  Company Number: 20109054

PATIENT
  Sex: Male

DRUGS (1)
  1. LIORESAL [Suspect]
     Indication: MUSCLE SPASTICITY
     Dosage: MCG, DAILY, INTRATHECAL
     Route: 037

REACTIONS (10)
  - MUSCLE SPASTICITY [None]
  - MUSCLE RIGIDITY [None]
  - THERAPEUTIC RESPONSE DECREASED [None]
  - TREMOR [None]
  - CONDITION AGGRAVATED [None]
  - HYPERTONIA [None]
  - DIZZINESS [None]
  - HYPOTONIA [None]
  - URINARY RETENTION [None]
  - MUSCLE SPASMS [None]
